FAERS Safety Report 7882548-0 (Version None)
Quarter: 2011Q4

REPORT INFORMATION
  Report Type: 
  Country: None (occurrence: None)
  Receive Date: 20111101
  Receipt Date: 20110616
  Transmission Date: 20120403
  Serious: No
  Sender: FDA-Public Use
  Company Number: US-AMGEN-USASP2011030886

PATIENT
  Sex: Female

DRUGS (1)
  1. ENBREL [Suspect]
     Indication: RHEUMATOID ARTHRITIS
     Dosage: 50 MG, QWK
     Dates: start: 20110501

REACTIONS (22)
  - EYELID MARGIN CRUSTING [None]
  - MENORRHAGIA [None]
  - FATIGUE [None]
  - MUSCULOSKELETAL STIFFNESS [None]
  - IMPAIRED HEALING [None]
  - METRORRHAGIA [None]
  - ANOGENITAL WARTS [None]
  - SKIN LESION [None]
  - NAUSEA [None]
  - RASH PRURITIC [None]
  - INSOMNIA [None]
  - BACK PAIN [None]
  - JOINT STIFFNESS [None]
  - DRY SKIN [None]
  - RASH PAPULAR [None]
  - DYSPNOEA [None]
  - ARTHRALGIA [None]
  - WEIGHT DECREASED [None]
  - OCULAR HYPERAEMIA [None]
  - EYE PRURITUS [None]
  - ABDOMINAL PAIN LOWER [None]
  - ASTHENIA [None]
